FAERS Safety Report 22267326 (Version 1)
Quarter: 2023Q2

REPORT INFORMATION
  Report Type: Spontaneous
  Country: US (occurrence: US)
  Receive Date: 20230428
  Receipt Date: 20230428
  Transmission Date: 20230721
  Serious: No
  Sender: FDA-Public Use
  Company Number: US-NEUROCRINE BIOSCIENCES INC.-2023NBI03395

PATIENT

DRUGS (2)
  1. INGREZZA [Suspect]
     Active Substance: VALBENAZINE
     Indication: Tardive dyskinesia
     Dosage: 80 MILLIGRAM,DAILY
     Route: 065
     Dates: start: 2022
  2. CLOZARIL [Concomitant]
     Active Substance: CLOZAPINE
     Dosage: UNKNOWN
     Route: 065

REACTIONS (1)
  - Weight decreased [Unknown]
